FAERS Safety Report 6425366-2 (Version None)
Quarter: 2009Q4

REPORT INFORMATION
  Report Type: 
  Country: None (occurrence: None)
  Receive Date: 20091103
  Receipt Date: 20091023
  Transmission Date: 20100525
  Serious: Yes (Other)
  Sender: FDA-Public Use
  Company Number: B0589639A

PATIENT
  Sex: Female

DRUGS (5)
  1. REQUIP [Suspect]
     Indication: TREMOR
     Route: 048
     Dates: start: 20070806
  2. ALMARL [Concomitant]
     Dosage: 20MG PER DAY
     Route: 048
     Dates: start: 20050511
  3. OLMETEC [Concomitant]
     Dosage: 20MG PER DAY
     Route: 048
     Dates: start: 20051012
  4. CALBLOCK [Concomitant]
     Dosage: 16MG PER DAY
     Route: 048
     Dates: start: 20080315
  5. LIVALO [Concomitant]
     Dosage: 2MG PER DAY
     Route: 048
     Dates: start: 20090303

REACTIONS (3)
  - ROAD TRAFFIC ACCIDENT [None]
  - SOMNOLENCE [None]
  - SUDDEN ONSET OF SLEEP [None]
